FAERS Safety Report 6071289-0 (Version None)
Quarter: 2009Q1

REPORT INFORMATION
  Report Type: 
  Country: None (occurrence: None)
  Receive Date: 20090205
  Receipt Date: 20090203
  Transmission Date: 20090719
  Serious: Yes (Other)
  Sender: FDA-Public Use
  Company Number: 1-16981761

PATIENT
  Sex: Female
  Weight: 68.0396 kg

DRUGS (1)
  1. TOPICORT [Suspect]
     Indication: DERMATITIS
     Dosage: TO NECK, ONCE, CUTANEOUS
     Route: 003
     Dates: start: 20081127

REACTIONS (3)
  - ALOPECIA [None]
  - APPLICATION SITE BURN [None]
  - THERMAL BURN [None]
